FAERS Safety Report 20661339 (Version 1)
Quarter: 2022Q2

REPORT INFORMATION
  Report Type: Spontaneous
  Country: IN (occurrence: IN)
  Receive Date: 20220401
  Receipt Date: 20220401
  Transmission Date: 20220721
  Serious: Yes (Other)
  Sender: FDA-Public Use
  Company Number: IN-SUN PHARMACEUTICAL INDUSTRIES LTD-2022R1-331430

PATIENT
  Weight: 1.7 kg

DRUGS (5)
  1. AGOMELATINE [Suspect]
     Active Substance: AGOMELATINE
     Indication: Memory impairment
     Dosage: UNK
     Route: 064
  2. MEMANTINE [Suspect]
     Active Substance: MEMANTINE
     Indication: Memory impairment
     Dosage: UNK
     Route: 064
  3. PROGESTERONE [Suspect]
     Active Substance: PROGESTERONE
     Indication: Supplementation therapy
     Dosage: UNK
     Route: 064
  4. THIAMINE [Suspect]
     Active Substance: THIAMINE
     Indication: Vitamin supplementation
     Dosage: 500 MILLIGRAM, BID
     Route: 064
  5. THIAMINE [Suspect]
     Active Substance: THIAMINE
     Indication: Vitamin supplementation
     Dosage: 200 MILLIGRAM, DAILY
     Route: 064

REACTIONS (5)
  - Foetal exposure during pregnancy [Unknown]
  - Foetal growth restriction [Unknown]
  - Breech presentation [Unknown]
  - Low birth weight baby [Unknown]
  - Premature baby [Unknown]
